FAERS Safety Report 4970368-6 (Version None)
Quarter: 2006Q2

REPORT INFORMATION
  Report Type: 
  Country: None (occurrence: None)
  Receive Date: 20060412
  Receipt Date: 20050718
  Transmission Date: 20061013
  Serious: Yes (Other)
  Sender: FDA-Public Use
  Company Number: US-GLAXOSMITHKLINE-A0566742A

PATIENT
  Sex: Female

DRUGS (1)
  1. PAXIL [Suspect]
     Indication: DRUG USE FOR UNKNOWN INDICATION
     Route: 048

REACTIONS (7)
  - ANGER [None]
  - DEPENDENCE [None]
  - DRUG DEPENDENCE [None]
  - DRUG DOSE OMISSION [None]
  - LIVER DISORDER [None]
  - MALAISE [None]
  - TENSION [None]
